FAERS Safety Report 5022019-2 (Version None)
Quarter: 2006Q2

REPORT INFORMATION
  Report Type: 
  Country: None (occurrence: None)
  Receive Date: 20060609
  Receipt Date: 20060602
  Transmission Date: 20061013
  Serious: Yes (Hospitalization)
  Sender: FDA-Public Use
  Company Number: DE-SP-2006-01352

PATIENT
  Age: 78 Year
  Sex: Female

DRUGS (13)
  1. IMMUCYST [Suspect]
     Indication: BLADDER CANCER
     Dosage: SUPSENSION, 50 ML
     Route: 043
     Dates: start: 20050427
  2. IMMUCYST [Suspect]
     Route: 043
     Dates: start: 20050504
  3. IMMUCYST [Suspect]
     Route: 043
     Dates: start: 20050511
  4. IMMUCYST [Suspect]
     Route: 043
     Dates: start: 20060518
  5. IMMUCYST [Suspect]
     Route: 043
     Dates: start: 20060525
  6. IMMUCYST [Suspect]
     Route: 043
     Dates: start: 20060601
  7. IMMUCYST [Suspect]
     Route: 043
     Dates: start: 20050720
  8. IMMUCYST [Suspect]
     Route: 043
     Dates: start: 20050727
  9. IMMUCYST [Suspect]
     Route: 043
     Dates: start: 20050803
  10. LEVOTHYROXINE SODIUM [Concomitant]
  11. SIMVASTATIN [Concomitant]
  12. NITRENDIPINE [Concomitant]
  13. HYDROCHLOROTHIAZIDE [Concomitant]

REACTIONS (1)
  - CYSTITIS [None]
